FAERS Safety Report 25484461 (Version 1)
Quarter: 2025Q2

REPORT INFORMATION
  Report Type: Spontaneous
  Country: US (occurrence: None)
  Receive Date: 20250626
  Receipt Date: 20250626
  Transmission Date: 20250716
  Serious: Yes (Other)
  Sender: FDA-CTU
  Company Number: None

PATIENT

DRUGS (5)
  1. BRILINTA [Suspect]
     Active Substance: TICAGRELOR
     Indication: Anticoagulant therapy
     Dates: start: 20250613, end: 20250613
  2. BRILINTA [Suspect]
     Active Substance: TICAGRELOR
     Indication: Stent placement
  3. VITAMINS [Concomitant]
     Active Substance: VITAMINS
  4. BABY ASPIRIN 81MG [Concomitant]
  5. VITAMIN D3 [Concomitant]
     Active Substance: CHOLECALCIFEROL

REACTIONS (2)
  - Dyspnoea [None]
  - Choking [None]

NARRATIVE: CASE EVENT DATE: 20250613
